FAERS Safety Report 17991378 (Version 1)
Quarter: 2020Q3

REPORT INFORMATION
  Report Type: Spontaneous
  Country: US (occurrence: US)
  Receive Date: 20200707
  Receipt Date: 20200707
  Transmission Date: 20201103
  Serious: No
  Sender: FDA-Public Use
  Company Number: US-GLAXOSMITHKLINE-US2019AMR240523

PATIENT
  Sex: Female

DRUGS (1)
  1. ZEJULA [Suspect]
     Active Substance: NIRAPARIB
     Indication: OVARIAN CANCER
     Dosage: 300 MG, QD (100 MG TID)
     Route: 048
     Dates: start: 201705

REACTIONS (4)
  - Hepatic lesion [Unknown]
  - Tumour marker decreased [Unknown]
  - Computerised tomogram liver abnormal [Unknown]
  - Condition aggravated [Unknown]
